FAERS Safety Report 20690335 (Version 1)
Quarter: 2022Q2

REPORT INFORMATION
  Report Type: Spontaneous
  Country: FR (occurrence: FR)
  Receive Date: 20220408
  Receipt Date: 20220408
  Transmission Date: 20220720
  Serious: Yes (Death)
  Sender: FDA-Public Use
  Company Number: None

PATIENT
  Age: 89 Year
  Sex: Female
  Weight: 96.2 kg

DRUGS (15)
  1. ALLOPURINOL [Suspect]
     Active Substance: ALLOPURINOL
     Indication: Product used for unknown indication
     Dosage: UNIT DOSE : 2 DF, FREQUENCY TIME :1 DAY
     Route: 048
     Dates: end: 20220305
  2. MORPHINE SULFATE [Suspect]
     Active Substance: MORPHINE SULFATE
     Indication: Pain
     Dosage: STRENGTH  : 5 MG, UNIT DOSE : 6 DF, FREQUENCY TIME :1 DAY
     Route: 048
     Dates: start: 20220303, end: 20220307
  3. HUMALOG [Suspect]
     Active Substance: INSULIN LISPRO
     Indication: Diabetes mellitus
     Route: 058
     Dates: start: 20220303
  4. CALCIUM CARBONATE\CHOLECALCIFEROL [Suspect]
     Active Substance: CALCIUM CARBONATE\CHOLECALCIFEROL
     Indication: Vitamin supplementation
     Dosage: UNIT DOSE :1 D F, FREQUENCY TIME :1 DAY, 500 MG/440 IU, EFFERVESCENT GRANULES FOR ORAL SOLUTION IN S
     Route: 048
     Dates: end: 20220307
  5. LOVENOX [Suspect]
     Active Substance: ENOXAPARIN SODIUM
     Indication: Prophylaxis
     Dosage: UNIT DOSE :1 DF, FREQUENCY TIME : 1 DAY, LOVENOX 4,000 ANTI-XA IU/0.4 ML
     Route: 058
     Dates: start: 20220304, end: 20220305
  6. MOVICOL [Suspect]
     Active Substance: POLYETHYLENE GLYCOL 3350\POTASSIUM CHLORIDE\SODIUM BICARBONATE\SODIUM CHLORIDE
     Indication: Constipation
     Dosage: UNIT DOSE : 1 DF, FREQUENCY TIME :1 DAY
     Route: 048
     Dates: end: 20220307
  7. CLOXACILLIN SODIUM [Suspect]
     Active Substance: CLOXACILLIN SODIUM
     Indication: Arthritis bacterial
     Dosage: UNIT DOSE :12 GRAM, FREQUENCY TIME :1 DAY
     Route: 042
     Dates: start: 20220305
  8. GENTAMICIN [Suspect]
     Active Substance: GENTAMICIN
     Indication: Arthritis bacterial
     Dosage: UNIT DOSE : 480 MG, FREQUENCY TIME : 1 DAY, DURATION : 30 MINUTES
     Route: 042
     Dates: start: 20220304, end: 20220304
  9. IPRATROPIUM [Suspect]
     Active Substance: IPRATROPIUM
     Indication: Oxygen saturation
     Route: 055
     Dates: start: 20220305
  10. ATORVASTATIN CALCIUM [Suspect]
     Active Substance: ATORVASTATIN CALCIUM
     Indication: Product used for unknown indication
     Dosage: UNIT DOSE : 20 MG, FREQUENCY TIME : 1 DAY
     Route: 048
     Dates: end: 20220306
  11. TERBUTALINE [Suspect]
     Active Substance: TERBUTALINE
     Indication: Oxygen saturation
     Dosage: TERBUTALINE ARROW 5 MG/2 ML, SOLUTION FOR INHALATION BY NEBULIZER IN SINGLE-DOSE CONTAINER
     Route: 055
     Dates: start: 20220305
  12. MORPHINE SULFATE [Suspect]
     Active Substance: MORPHINE SULFATE
     Indication: Pain
     Dosage: SKENAN L.P. 30 MG, PROLONGED-RELEASE MICROGRANULES IN CAPSULE
     Route: 048
     Dates: start: 20220303, end: 20220306
  13. ACETAMINOPHEN [Suspect]
     Active Substance: ACETAMINOPHEN
     Indication: Pain
     Dosage: UNIT DOSE :3 GRAM, FREQUENCY TIME  :1 DAY
     Route: 042
     Dates: start: 20220303
  14. PANTOPRAZOLE SODIUM [Suspect]
     Active Substance: PANTOPRAZOLE SODIUM
     Indication: Product used for unknown indication
     Dosage: PANTOPRAZOLE BIOGARAN 20 MG, GASTRO-RESISTANT TABLET
     Route: 048
     Dates: start: 20220303, end: 20220306
  15. FUROSEMIDE [Concomitant]
     Active Substance: FUROSEMIDE

REACTIONS (2)
  - Acute kidney injury [Fatal]
  - Renal tubular necrosis [Fatal]

NARRATIVE: CASE EVENT DATE: 20220306
